FAERS Safety Report 19888101 (Version 1)
Quarter: 2021Q3

REPORT INFORMATION
  Report Type: Spontaneous
  Country: US (occurrence: US)
  Receive Date: 20210928
  Receipt Date: 20210928
  Transmission Date: 20211014
  Serious: Yes (Hospitalization)
  Sender: FDA-Public Use
  Company Number: US-SA-2021SA317455

PATIENT
  Sex: Male

DRUGS (9)
  1. PREDNISONE. [Concomitant]
     Active Substance: PREDNISONE
  2. LEVOTHYROXIN [Concomitant]
     Active Substance: LEVOTHYROXINE
  3. PREGABALIN. [Concomitant]
     Active Substance: PREGABALIN
  4. ABREVA [Concomitant]
     Active Substance: DOCOSANOL
  5. CALCIUM [Concomitant]
     Active Substance: CALCIUM
  6. DUPIXENT [Suspect]
     Active Substance: DUPILUMAB
     Indication: ASTHMA
     Route: 058
  7. LANTUS [Concomitant]
     Active Substance: INSULIN GLARGINE
  8. ATORVASTATIN [Concomitant]
     Active Substance: ATORVASTATIN
  9. NOVOLIN 70/30 [Concomitant]
     Active Substance: INSULIN HUMAN

REACTIONS (3)
  - Fall [Unknown]
  - Back disorder [Unknown]
  - Gait disturbance [Unknown]
